FAERS Safety Report 4378466-5 (Version None)
Quarter: 2004Q2

REPORT INFORMATION
  Report Type: 
  Country: None (occurrence: None)
  Receive Date: 20040609
  Receipt Date: 20040528
  Transmission Date: 20050107
  Serious: Yes (Hospitalization, Other)
  Sender: FDA-Public Use
  Company Number: 2004035938

PATIENT
  Age: 64 Year
  Sex: Female

DRUGS (2)
  1. LIPITOR [Suspect]
     Indication: ILL-DEFINED DISORDER
     Dosage: 10 MG (10 MG, 1 IN D)
  2. MORPHINE [Concomitant]

REACTIONS (6)
  - DIABETES MELLITUS [None]
  - MUSCLE DISORDER [None]
  - PAIN [None]
  - PARAESTHESIA [None]
  - RENAL FAILURE [None]
  - SEPSIS [None]
